FAERS Safety Report 15329335 (Version 1)
Quarter: 2018Q3

REPORT INFORMATION
  Report Type: Spontaneous
  Country: FR (occurrence: FR)
  Receive Date: 20180829
  Receipt Date: 20180829
  Transmission Date: 20181010
  Serious: Yes (Other)
  Sender: FDA-Public Use
  Company Number: FR-GLAXOSMITHKLINE-FR2018GSK156095

PATIENT
  Age: 68 Year
  Sex: Female

DRUGS (1)
  1. NICOPATCH [Suspect]
     Active Substance: NICOTINE
     Indication: SMOKING CESSATION THERAPY
     Dosage: 1 DF, QD (1/DAY) 21 MG/24 H
     Route: 065
     Dates: start: 20180820

REACTIONS (3)
  - Treatment noncompliance [Unknown]
  - Overdose [Unknown]
  - Nicotine dependence [Unknown]

NARRATIVE: CASE EVENT DATE: 20180820
